FAERS Safety Report 15701211 (Version 1)
Quarter: 2018Q4

REPORT INFORMATION
  Report Type: Report from Study
  Country: US (occurrence: US)
  Receive Date: 20181207
  Receipt Date: 20181207
  Transmission Date: 20190205
  Serious: Yes (Other)
  Sender: FDA-Public Use
  Company Number: US-MYLANLABS-2018M1088803

PATIENT

DRUGS (7)
  1. CLOFARABINE. [Suspect]
     Active Substance: CLOFARABINE
     Indication: BONE MARROW CONDITIONING REGIMEN
     Dosage: INFUSION; STARTED EIGHT DAYS BEFORE HAEMATOPOETIC CELL TRANSPLANT
     Route: 065
  2. FOSPHENYTOIN [Concomitant]
     Active Substance: FOSPHENYTOIN
     Indication: SEIZURE PROPHYLAXIS
     Route: 065
  3. THIOTEPA. [Suspect]
     Active Substance: THIOTEPA
     Indication: BONE MARROW CONDITIONING REGIMEN
     Dosage: RECEIVED TWO DOSES 12 HOURS APART ON THREE DAYS BEFORE HAEMATOPOETIC CELL TRANSPLANT
     Route: 065
  4. RITUXIMAB. [Concomitant]
     Active Substance: RITUXIMAB
     Dosage: RECEIVED 375 MG/M2 ONE DAY BEFORE HAEMATOPOETIC CELL TRANSPLANT
     Route: 065
  5. MELPHALAN. [Suspect]
     Active Substance: MELPHALAN
     Indication: BONE MARROW CONDITIONING REGIMEN
     Dosage: 60 MG/M2/DOSE ON DAYS 1 AND 2 BEFORE HAEMATOPOETIC CELL TRANSPLANT
     Route: 065
  6. MUROMONAB-CD3 [Suspect]
     Active Substance: MUROMONAB-CD3
     Indication: BONE MARROW CONDITIONING REGIMEN
     Dosage: RECEIVED DAILY FROM NINE DAYS BEFORE HCT TILL 17 DAYS POST HAEMATOPOETIC CELL TRANSPLANT
     Route: 065
  7. MYCOPHENOLATE MOFETIL. [Concomitant]
     Active Substance: MYCOPHENOLATE MOFETIL
     Indication: PROPHYLAXIS AGAINST GRAFT VERSUS HOST DISEASE
     Dosage: STARTED TWO DAYS BEFORE HAEMATOPOETIC CELL TRANSPLANT WITH THE GOAL OF STOPPING ADMINISTRATION BY...
     Route: 065

REACTIONS (2)
  - Venoocclusive liver disease [Recovered/Resolved]
  - Capillary leak syndrome [Recovered/Resolved]
